FAERS Safety Report 19995754 (Version 1)
Quarter: 2021Q4

REPORT INFORMATION
  Report Type: Spontaneous
  Country: US (occurrence: US)
  Receive Date: 20211026
  Receipt Date: 20211026
  Transmission Date: 20220303
  Serious: No
  Sender: FDA-Public Use
  Company Number: US-BEH-2021136980

PATIENT
  Sex: Female

DRUGS (9)
  1. HIZENTRA [Suspect]
     Active Substance: HUMAN IMMUNOGLOBULIN G
     Indication: Immunodeficiency common variable
     Dosage: 20 GRAM, QW
     Route: 058
     Dates: start: 202104
  2. HIZENTRA [Suspect]
     Active Substance: HUMAN IMMUNOGLOBULIN G
     Indication: Urticaria
     Dosage: 1 GRAM, QW
     Route: 058
     Dates: start: 202104
  3. HIZENTRA [Suspect]
     Active Substance: HUMAN IMMUNOGLOBULIN G
     Indication: Dermatitis atopic
     Dosage: 4 GRAM, QW
     Route: 058
     Dates: start: 202104
  4. HIZENTRA [Suspect]
     Active Substance: HUMAN IMMUNOGLOBULIN G
     Indication: Idiopathic urticaria
     Dosage: 1 GRAM, QW
     Route: 058
     Dates: start: 20210401
  5. HIZENTRA [Suspect]
     Active Substance: HUMAN IMMUNOGLOBULIN G
     Dosage: UNK
     Route: 065
     Dates: start: 20211003
  6. HIZENTRA [Suspect]
     Active Substance: HUMAN IMMUNOGLOBULIN G
     Dosage: UNK
     Route: 065
     Dates: start: 20211010
  7. XOLAIR [Concomitant]
     Active Substance: OMALIZUMAB
  8. BENADRYL [Concomitant]
     Active Substance: DIPHENHYDRAMINE HYDROCHLORIDE
  9. TYLENOL [Concomitant]
     Active Substance: ACETAMINOPHEN

REACTIONS (10)
  - Headache [Recovered/Resolved]
  - Nausea [Unknown]
  - Feeling abnormal [Unknown]
  - Pain [Unknown]
  - Dehydration [Unknown]
  - Urticaria [Unknown]
  - Pruritus [Unknown]
  - No adverse event [Unknown]
  - Off label use [Unknown]
  - Headache [Unknown]
